FAERS Safety Report 6696290-5 (Version None)
Quarter: 2010Q2

REPORT INFORMATION
  Report Type: 
  Country: None (occurrence: None)
  Receive Date: 20100426
  Receipt Date: 20100322
  Transmission Date: 20101027
  Serious: Yes (Other)
  Sender: FDA-Public Use
  Company Number: US-BAXTER-2010BH001834

PATIENT
  Age: 57 Year
  Sex: Female
  Weight: 81 kg

DRUGS (13)
  1. HEPARIN SODIUM INJECTION [Suspect]
     Indication: CATHETERISATION CARDIAC
     Route: 040
     Dates: start: 20080312, end: 20080312
  2. HEPARIN SODIUM INJECTION [Suspect]
     Indication: ARTERIOGRAM CORONARY
     Route: 040
     Dates: start: 20080312, end: 20080312
  3. HEPARIN SODIUM INJECTION [Suspect]
     Indication: CARDIAC VENTRICULOGRAM
     Route: 040
     Dates: start: 20080312, end: 20080312
  4. HEPARIN SODIUM INJECTION [Suspect]
     Route: 041
     Dates: start: 20080312, end: 20080314
  5. HEPARIN SODIUM INJECTION [Suspect]
     Route: 041
     Dates: start: 20080312, end: 20080314
  6. HEPARIN SODIUM INJECTION [Suspect]
     Route: 041
     Dates: start: 20080312, end: 20080314
  7. HEPARIN SODIUM INJECTION [Suspect]
     Route: 058
     Dates: start: 20080315, end: 20080322
  8. HEPARIN SODIUM INJECTION [Suspect]
     Route: 058
     Dates: start: 20080315, end: 20080322
  9. HEPARIN SODIUM INJECTION [Suspect]
     Route: 058
     Dates: start: 20080315, end: 20080322
  10. MULTI-VITAMINS [Concomitant]
     Indication: DRUG USE FOR UNKNOWN INDICATION
     Route: 065
  11. CALCIUM [Concomitant]
     Indication: DRUG USE FOR UNKNOWN INDICATION
     Route: 065
  12. ALBUTEROL [Concomitant]
     Indication: DRUG USE FOR UNKNOWN INDICATION
     Route: 065
  13. LOVENOX [Concomitant]
     Indication: DRUG USE FOR UNKNOWN INDICATION
     Route: 065

REACTIONS (10)
  - ABDOMINAL DISTENSION [None]
  - ANGIOEDEMA [None]
  - DRUG HYPERSENSITIVITY [None]
  - DYSPNOEA [None]
  - OEDEMA PERIPHERAL [None]
  - PRURITUS [None]
  - RASH [None]
  - SWELLING [None]
  - TENDERNESS [None]
  - WHEEZING [None]
